FAERS Safety Report 15076963 (Version 1)
Quarter: 2018Q3

REPORT INFORMATION
  Report Type: Spontaneous
  Country: ZA (occurrence: ZA)
  Receive Date: 20180627
  Receipt Date: 20180627
  Transmission Date: 20181010
  Serious: Yes (Hospitalization)
  Sender: FDA-Public Use
  Company Number: ZA-PFIZER INC-2018257574

PATIENT
  Age: 60 Year
  Sex: Female

DRUGS (12)
  1. SALAZOPYRIN [Suspect]
     Active Substance: SULFASALAZINE
     Dosage: 500 MG, UNK
  2. DISPRIN [Suspect]
     Active Substance: ASPIRIN
     Dosage: UNK
  3. ASPAVOR [Suspect]
     Active Substance: ATORVASTATIN
     Dosage: 20 MG, UNK
  4. AMLOC /00550802/ [Suspect]
     Active Substance: RANITIDINE HYDROCHLORIDE
     Dosage: 10 MG, UNK
  5. COXFLAM [Suspect]
     Active Substance: MELOXICAM
     Dosage: 7.5 MG, UNK
  6. CARLOC [Suspect]
     Active Substance: CARVEDILOL
     Dosage: 25 MG, UNK
  7. CARDIOCARE [Suspect]
     Active Substance: NITROGLYCERIN
     Dosage: 100 MG, UNK
  8. CIPLAVASC [Suspect]
     Active Substance: AMLODIPINE BESYLATE
     Dosage: 5 MG, UNK
  9. MYOPRIN [Suspect]
     Active Substance: ASPIRIN
     Dosage: 100 MG, UNK
  10. METHOTREXATE. [Suspect]
     Active Substance: METHOTREXATE
     Dosage: 2.5 MG, UNK
  11. CO?TAREG [Suspect]
     Active Substance: HYDROCHLOROTHIAZIDE\VALSARTAN
     Dosage: 100/12.5 MG, UNK
  12. ESCITALOPRAM [Suspect]
     Active Substance: ESCITALOPRAM OXALATE
     Dosage: 10 MG, UNK

REACTIONS (1)
  - Hypertension [Unknown]

NARRATIVE: CASE EVENT DATE: 20180511
